FAERS Safety Report 5501205-9 (Version None)
Quarter: 2007Q4

REPORT INFORMATION
  Report Type: 
  Country: None (occurrence: None)
  Receive Date: 20071029
  Receipt Date: 20071017
  Transmission Date: 20080405
  Serious: Yes (Disabling, Other)
  Sender: FDA-Public Use
  Company Number: JP-PFIZER INC-2007085145

PATIENT
  Sex: Male
  Weight: 53.8 kg

DRUGS (7)
  1. DETRUSITOL [Suspect]
     Indication: HYPERTONIC BLADDER
     Route: 048
     Dates: start: 20070929, end: 20071004
  2. VESICARE [Concomitant]
     Dosage: DAILY DOSE:5MG
     Route: 048
     Dates: start: 20070901, end: 20070928
  3. HERBESSER R [Concomitant]
     Route: 048
  4. NORVASC [Concomitant]
     Route: 048
  5. LANIRAPID [Concomitant]
     Route: 048
  6. VOLTAREN [Concomitant]
     Route: 048
  7. LANSOPRAZOLE [Concomitant]
     Route: 048

REACTIONS (2)
  - BENIGN PROSTATIC HYPERPLASIA [None]
  - URINARY RETENTION [None]
